FAERS Safety Report 7306763-X (Version None)
Quarter: 2011Q1

REPORT INFORMATION
  Report Type: 
  Country: None (occurrence: None)
  Receive Date: 20110222
  Receipt Date: 20110208
  Transmission Date: 20110831
  Serious: Yes (Hospitalization, Other)
  Sender: FDA-Public Use
  Company Number: FR-WATSON-2010-16754

PATIENT
  Sex: Male

DRUGS (3)
  1. PERFALGAN [Suspect]
     Indication: PRODUCT USED FOR UNKNOWN INDICATION
     Dosage: UNK
     Dates: start: 20101231, end: 20101231
  2. SOLU-MEDROL [Concomitant]
     Indication: ASTHMA
     Dosage: UNK
     Route: 042
     Dates: start: 20101230, end: 20101231
  3. ALBUTEROL SULFATE [Suspect]
     Indication: ASTHMA
     Dosage: 2 1/2 MG INHALED X 1, 4 TIMES PER DAY
     Route: 055
     Dates: start: 20101230, end: 20101231

REACTIONS (2)
  - RESPIRATORY DISORDER [None]
  - OXYGEN SATURATION ABNORMAL [None]
